FAERS Safety Report 13265447 (Version 1)
Quarter: 2017Q1

REPORT INFORMATION
  Report Type: Spontaneous
  Country: KE (occurrence: KE)
  Receive Date: 20170223
  Receipt Date: 20170223
  Transmission Date: 20170428
  Serious: Yes (Other)
  Sender: FDA-Public Use
  Company Number: KE-JNJFOC-20170217054

PATIENT

DRUGS (6)
  1. DOXORUBICIN HYDROCHLORIDE. [Suspect]
     Active Substance: DOXORUBICIN HYDROCHLORIDE
     Indication: NON-HODGKIN^S LYMPHOMA
     Dosage: CUMULATIVE DOSE BETWEEN 200-400 MG/M2, ONLY 10 PERCENT HAD CUMULATIVE DOSE ABOVE 400 MG/M2
     Route: 051
  2. MERCAPTOPURINE. [Suspect]
     Active Substance: MERCAPTOPURINE
     Indication: NON-HODGKIN^S LYMPHOMA
     Route: 048
  3. CYCLOPHOSPHAMIDE. [Suspect]
     Active Substance: CYCLOPHOSPHAMIDE
     Indication: NON-HODGKIN^S LYMPHOMA
     Route: 051
  4. VINCRISTINE [Suspect]
     Active Substance: VINCRISTINE
     Indication: NON-HODGKIN^S LYMPHOMA
     Route: 051
  5. METHOTREXATE. [Suspect]
     Active Substance: METHOTREXATE
     Indication: NON-HODGKIN^S LYMPHOMA
     Route: 048
  6. METHOTREXATE. [Suspect]
     Active Substance: METHOTREXATE
     Indication: NON-HODGKIN^S LYMPHOMA
     Route: 037

REACTIONS (19)
  - Hyperchlorhydria [Unknown]
  - Nail pigmentation [Unknown]
  - Drug dose omission [Unknown]
  - Vomiting [Unknown]
  - Mouth ulceration [Unknown]
  - Underdose [Unknown]
  - Off label use [Unknown]
  - Overdose [Unknown]
  - Paraesthesia [Unknown]
  - Dizziness [Unknown]
  - Constipation [Unknown]
  - Alopecia [Unknown]
  - Gastric ulcer [Unknown]
  - Neutropenia [Unknown]
  - Product use issue [Unknown]
  - Pain in extremity [Unknown]
  - Anaemia [Unknown]
  - Pigmentation disorder [Unknown]
  - Diarrhoea [Unknown]
